FAERS Safety Report 4684733-8 (Version None)
Quarter: 2005Q2

REPORT INFORMATION
  Report Type: 
  Country: None (occurrence: None)
  Receive Date: 20050531
  Receipt Date: 20050131
  Transmission Date: 20051028
  Serious: Yes (Other)
  Sender: FDA-Public Use
  Company Number: USA050189513

PATIENT
  Age: 42 Year
  Sex: Female

DRUGS (6)
  1. OLANZAPINE [Suspect]
     Dosage: 10 MG
     Dates: start: 20050101
  2. DEPAKOTE [Concomitant]
  3. GEODON [Concomitant]
  4. LITHIUM [Concomitant]
  5. METFORMIN [Concomitant]
  6. KLONOPIN [Concomitant]

REACTIONS (1)
  - LOSS OF CONSCIOUSNESS [None]
